FAERS Safety Report 6103413-5 (Version None)
Quarter: 2009Q1

REPORT INFORMATION
  Report Type: 
  Country: None (occurrence: None)
  Receive Date: 20090305
  Receipt Date: 20090224
  Transmission Date: 20090719
  Serious: Yes (Other)
  Sender: FDA-Public Use
  Company Number: PHHY2009GB07202

PATIENT

DRUGS (1)
  1. SANDOSTATIN [Suspect]
     Dosage: 50 UG, TID

REACTIONS (5)
  - ABDOMINAL OPERATION [None]
  - FISTULA DISCHARGE [None]
  - PAIN [None]
  - PARENTERAL NUTRITION [None]
  - WEIGHT DECREASED [None]
